FAERS Safety Report 24630761 (Version 1)
Quarter: 2024Q4

REPORT INFORMATION
  Report Type: Spontaneous
  Country: US (occurrence: None)
  Receive Date: 20241115
  Receipt Date: 20241115
  Transmission Date: 20250114
  Serious: No
  Sender: Public
  Company Number: None

PATIENT
  Age: 31 Year
  Sex: Female
  Weight: 50.4 kg

DRUGS (5)
  1. LINZESS [Suspect]
     Active Substance: LINACLOTIDE
     Indication: Constipation
     Dosage: 1 CAPSULE DAILY ORAL
     Route: 048
     Dates: start: 20241105, end: 20241115
  2. LINZESS [Suspect]
     Active Substance: LINACLOTIDE
     Indication: Abdominal distension
  3. LEXAPRO [Concomitant]
     Active Substance: ESCITALOPRAM OXALATE
  4. B12 COMPLEX [Concomitant]
  5. AMAZING GRASS BREENS [Concomitant]

REACTIONS (4)
  - Fatigue [None]
  - Feeling abnormal [None]
  - Fatigue [None]
  - Somnolence [None]

NARRATIVE: CASE EVENT DATE: 20241111
